FAERS Safety Report 6248315-9 (Version None)
Quarter: 2009Q2

REPORT INFORMATION
  Report Type: 
  Country: None (occurrence: None)
  Receive Date: 20090629
  Receipt Date: 20090617
  Transmission Date: 20091009
  Serious: Yes (Other)
  Sender: FDA-Public Use
  Company Number: PHEH2008US05098

PATIENT
  Sex: Female

DRUGS (2)
  1. AREDIA [Suspect]
  2. ZOMETA [Suspect]
     Dosage: UNK
     Dates: start: 20010101

REACTIONS (17)
  - ANXIETY [None]
  - BONE DISORDER [None]
  - CHONDROMALACIA [None]
  - DEFORMITY [None]
  - EMOTIONAL DISTRESS [None]
  - FACIAL BONES FRACTURE [None]
  - FALL [None]
  - HAND FRACTURE [None]
  - INFECTION [None]
  - INJURY [None]
  - JOINT EFFUSION [None]
  - LUNG NEOPLASM [None]
  - OSTEOARTHRITIS [None]
  - OSTEONECROSIS [None]
  - PAIN [None]
  - PAIN IN JAW [None]
  - SYNOVIAL CYST [None]
